FAERS Safety Report 8567542-9 (Version None)
Quarter: 2012Q3

REPORT INFORMATION
  Report Type: 
  Country: None (occurrence: None)
  Receive Date: 20120803
  Receipt Date: 20120802
  Transmission Date: 20120928
  Serious: Yes (Hospitalization)
  Sender: FDA-Public Use
  Company Number: PHHY2012NZ055533

PATIENT
  Age: 6 Year
  Sex: Female

DRUGS (1)
  1. METHYLPHENIDATE [Suspect]

REACTIONS (3)
  - ANXIETY [None]
  - DEPRESSION [None]
  - SELF INJURIOUS BEHAVIOUR [None]
